FAERS Safety Report 17933449 (Version 1)
Quarter: 2020Q2

REPORT INFORMATION
  Report Type: Spontaneous
  Country: US (occurrence: US)
  Receive Date: 20200622
  Receipt Date: 20200622
  Transmission Date: 20200714
  Serious: Yes (Hospitalization)
  Sender: FDA-Public Use
  Company Number: None

PATIENT
  Age: 48 Year
  Sex: Male
  Weight: 101 kg

DRUGS (2)
  1. WELLBUTRIN XL [Suspect]
     Active Substance: BUPROPION HYDROCHLORIDE
     Indication: POST-TRAUMATIC STRESS DISORDER
     Route: 048
     Dates: start: 20180524, end: 20200612
  2. WELLBUTRIN XL [Suspect]
     Active Substance: BUPROPION HYDROCHLORIDE
     Indication: DEPRESSION
     Route: 048
     Dates: start: 20180524, end: 20200612

REACTIONS (4)
  - Therapy cessation [None]
  - Loss of consciousness [None]
  - Syncope [None]
  - Seizure [None]

NARRATIVE: CASE EVENT DATE: 20200612
